FAERS Safety Report 4928717-0 (Version None)
Quarter: 2006Q1

REPORT INFORMATION
  Report Type: 
  Country: None (occurrence: None)
  Receive Date: 20060301
  Receipt Date: 20060223
  Transmission Date: 20060701
  Serious: Yes (Hospitalization)
  Sender: FDA-Public Use
  Company Number: US-JNJFOC-20060205509

PATIENT
  Sex: Male
  Weight: 92.99 kg

DRUGS (8)
  1. INFLIXIMAB [Suspect]
     Indication: RHEUMATOID ARTHRITIS
     Route: 042
  2. METHOTREXATE [Concomitant]
  3. MOBIC [Concomitant]
  4. FOLIC ACID [Concomitant]
  5. TYLENOL (CAPLET) [Concomitant]
  6. VITAMIN E [Concomitant]
  7. PREDNISONE [Concomitant]
  8. LISINOPRIL [Concomitant]

REACTIONS (1)
  - ATRIAL FIBRILLATION [None]
